FAERS Safety Report 18072183 (Version 1)
Quarter: 2020Q3

REPORT INFORMATION
  Report Type: Spontaneous
  Country: US (occurrence: US)
  Receive Date: 20200725
  Receipt Date: 20200725
  Transmission Date: 20201103
  Serious: Yes (Life-Threatening, Hospitalization, Disabling, Other)
  Sender: FDA-Public Use
  Company Number: None

PATIENT
  Age: 36 Year
  Sex: Female

DRUGS (6)
  1. ARISTADA [Suspect]
     Active Substance: ARIPIPRAZOLE LAUROXIL
     Indication: BIPOLAR DISORDER
     Dosage: ?          QUANTITY:3 INJECTION(S);OTHER FREQUENCY:MONTHLY;?
     Route: 030
     Dates: start: 20190518, end: 20190618
  2. TRAZODONE [Concomitant]
     Active Substance: TRAZODONE HYDROCHLORIDE
  3. LITHIUM. [Concomitant]
     Active Substance: LITHIUM
  4. ABILIFY [Concomitant]
     Active Substance: ARIPIPRAZOLE
  5. TOPAMAX [Concomitant]
     Active Substance: TOPIRAMATE
  6. VALIUM [Concomitant]
     Active Substance: DIAZEPAM

REACTIONS (3)
  - Mobility decreased [None]
  - Dizziness [None]
  - Cerebrovascular accident [None]

NARRATIVE: CASE EVENT DATE: 20190528
